FAERS Safety Report 8004817-6 (Version None)
Quarter: 2011Q4

REPORT INFORMATION
  Report Type: 
  Country: None (occurrence: None)
  Receive Date: 20111223
  Receipt Date: 20111212
  Transmission Date: 20120403
  Serious: Yes (Hospitalization)
  Sender: FDA-Public Use
  Company Number: IN-BRISTOL-MYERS SQUIBB COMPANY-16284242

PATIENT
  Age: 65 Year
  Sex: Female

DRUGS (2)
  1. CEFEPIME [Suspect]
     Indication: DYSPNOEA
  2. CEFEPIME [Suspect]
     Indication: PRODUCTIVE COUGH

REACTIONS (3)
  - MYOCLONUS [None]
  - APHASIA [None]
  - CHOREA [None]
